FAERS Safety Report 5451301-X (Version None)
Quarter: 2007Q3

REPORT INFORMATION
  Report Type: 
  Country: None (occurrence: None)
  Receive Date: 20070911
  Receipt Date: 20070911
  Transmission Date: 20080115
  Serious: Yes (Life-Threatening, Hospitalization)
  Sender: FDA-Public Use
  Company Number: None

PATIENT
  Age: 63 Year
  Sex: Female

DRUGS (11)
  1. ENOXAPARIN SODIUM [Suspect]
     Indication: ATRIAL FIBRILLATION
     Dosage: 60 MG  Q12H  SQ
     Route: 058
  2. ENOXAPARIN SODIUM [Suspect]
     Indication: DEEP VEIN THROMBOSIS
     Dosage: 60 MG  Q12H  SQ
     Route: 058
  3. LEVETIRACETAM [Concomitant]
  4. PANTOPRAZOLE SODIUM [Concomitant]
  5. DEXAMETHASONE 0.5MG TAB [Concomitant]
  6. DIGOXIN [Concomitant]
  7. CLARITIN [Concomitant]
  8. M.V.I. [Concomitant]
  9. TARCEVA [Concomitant]
  10. METOCLOPRAMIDE [Concomitant]
  11. OXYCODONE HCL [Concomitant]

REACTIONS (1)
  - SUBDURAL HAEMATOMA [None]
